FAERS Safety Report 14075596 (Version 1)
Quarter: 2017Q4

REPORT INFORMATION
  Report Type: Spontaneous
  Country: HR (occurrence: HR)
  Receive Date: 20171011
  Receipt Date: 20171011
  Transmission Date: 20180321
  Serious: Yes (Hospitalization, Other)
  Sender: FDA-Public Use
  Company Number: HR-TEVA-812552ACC

PATIENT
  Age: 3 Year
  Sex: Male
  Weight: 15 kg

DRUGS (1)
  1. PRAXITEN [Suspect]
     Active Substance: OXAZEPAM
     Route: 048
     Dates: start: 20170802

REACTIONS (2)
  - Ataxia [Unknown]
  - Somnolence [Unknown]

NARRATIVE: CASE EVENT DATE: 20170802
